FAERS Safety Report 7002063-6 (Version None)
Quarter: 2010Q3

REPORT INFORMATION
  Report Type: 
  Country: None (occurrence: None)
  Receive Date: 20100917
  Receipt Date: 20100917
  Transmission Date: 20110219
  Serious: Yes (Other)
  Sender: FDA-Public Use
  Company Number: None

PATIENT
  Age: 65 Year
  Sex: Female
  Weight: 65.7716 kg

DRUGS (1)
  1. PHENTERMINE HCL [Suspect]
     Indication: WEIGHT CONTROL
     Dosage: 30 MG ONE BID BY MOUTH
     Route: 048
     Dates: start: 20090501, end: 20100901

REACTIONS (5)
  - DROOLING [None]
  - HYPOAESTHESIA ORAL [None]
  - NEURALGIA [None]
  - RASH [None]
  - SKIN DISCOLOURATION [None]
